FAERS Safety Report 7754637-2 (Version None)
Quarter: 2011Q3

REPORT INFORMATION
  Report Type: 
  Country: None (occurrence: None)
  Receive Date: 20110915
  Receipt Date: 20110705
  Transmission Date: 20111222
  Serious: No
  Sender: FDA-Public Use
  Company Number: US-ALLERGAN-1109083US

PATIENT
  Age: 83 Year
  Sex: Male

DRUGS (5)
  1. COZAAR [Concomitant]
  2. LUMIGAN [Suspect]
     Indication: GLAUCOMA
     Dosage: 2 GTT, QD
     Route: 047
     Dates: start: 20110101
  3. LIPITOR [Concomitant]
  4. CALCIUM CARBONATE [Concomitant]
  5. WARFARIN SODIUM [Concomitant]

REACTIONS (1)
  - ATRIAL FIBRILLATION [None]
